FAERS Safety Report 10098794 (Version 1)
Quarter: 2014Q2

REPORT INFORMATION
  Report Type: Spontaneous
  Country: CN (occurrence: CN)
  Receive Date: 20140423
  Receipt Date: 20140423
  Transmission Date: 20141212
  Serious: Yes (Hospitalization)
  Sender: FDA-Public Use
  Company Number: CN-SA-2014SA050849

PATIENT
  Age: 53 Year
  Sex: Female

DRUGS (3)
  1. DOCETAXEL [Suspect]
     Indication: BREAST CANCER
     Dosage: ROUTE IVGTT
  2. DEXAMETHASONE [Concomitant]
     Route: 048
  3. ADRIAMYCIN [Concomitant]
     Dosage: AT 40 MG/M2

REACTIONS (1)
  - Bradycardia [Recovered/Resolved]
